FAERS Safety Report 12439291 (Version 1)
Quarter: 2016Q2

REPORT INFORMATION
  Report Type: Spontaneous
  Country: GB (occurrence: GB)
  Receive Date: 20160606
  Receipt Date: 20160606
  Transmission Date: 20160815
  Serious: Yes (Life-Threatening)
  Sender: FDA-Public Use
  Company Number: GB-B. BRAUN MEDICAL INC.-1053367

PATIENT
  Age: 58 Year
  Sex: Male

DRUGS (17)
  1. CLINDAMYCIN [Suspect]
     Active Substance: CLINDAMYCIN\CLINDAMYCIN PHOSPHATE
     Route: 042
     Dates: start: 20160421, end: 20160428
  2. PANTOPRAZOLE [Suspect]
     Active Substance: PANTOPRAZOLE SODIUM
     Route: 042
     Dates: start: 20160421, end: 20160428
  3. BECLOMETASONE [Concomitant]
     Active Substance: BECLOMETHASONE DIPROPIONATE
     Route: 048
  4. METOCLOPRAMIDE. [Concomitant]
     Active Substance: METOCLOPRAMIDE
     Route: 041
  5. FOLIC ACID. [Concomitant]
     Active Substance: FOLIC ACID
     Route: 060
  6. HYDROCORTISONE. [Concomitant]
     Active Substance: HYDROCORTISONE
  7. METRONIDAZOLE. [Suspect]
     Active Substance: METRONIDAZOLE
     Route: 042
     Dates: start: 20160421, end: 20160428
  8. HYDROXYZINE [Concomitant]
     Active Substance: HYDROXYZINE\HYDROXYZINE HYDROCHLORIDE
  9. PREGABALIN. [Concomitant]
     Active Substance: PREGABALIN
  10. FENTANYL. [Concomitant]
     Active Substance: FENTANYL
     Route: 042
  11. PABRINEX [Concomitant]
     Route: 030
  12. CIPROFLOXACIN. [Suspect]
     Active Substance: CIPROFLOXACIN
     Route: 042
     Dates: start: 20160421, end: 20160428
  13. LEVETIRACETAM. [Suspect]
     Active Substance: LEVETIRACETAM
     Route: 042
     Dates: start: 20160421, end: 20160428
  14. TARGOCID [Suspect]
     Active Substance: TEICOPLANIN
     Route: 042
     Dates: start: 20160421, end: 20160428
  15. DALTEPARIN SODIUM [Concomitant]
     Active Substance: DALTEPARIN SODIUM
     Route: 058
  16. PERFALGAN(PARACETAMOL) [Concomitant]
     Route: 042
  17. PHYTOMENADIONE [Concomitant]
     Active Substance: PHYTONADIONE
     Route: 042

REACTIONS (1)
  - Toxic epidermal necrolysis [None]
